FAERS Safety Report 7901568-0 (Version None)
Quarter: 2011Q4

REPORT INFORMATION
  Report Type: 
  Country: None (occurrence: None)
  Receive Date: 20111108
  Receipt Date: 20111102
  Transmission Date: 20120403
  Serious: Yes (Disabling, Other)
  Sender: FDA-Public Use
  Company Number: US-BAYER-2011-097763

PATIENT
  Age: 33 Year
  Sex: Female

DRUGS (1)
  1. MIRENA [Suspect]
     Indication: CONTRACEPTION
     Dosage: 20 MCG/24HR, CONT
     Route: 015
     Dates: start: 20110701, end: 20110901

REACTIONS (31)
  - BREAST PAIN [None]
  - ARTHRALGIA [None]
  - DEPRESSION [None]
  - WEIGHT INCREASED [None]
  - GENITAL HAEMORRHAGE [None]
  - ABDOMINAL DISTENSION [None]
  - PYREXIA [None]
  - PELVIC PAIN [None]
  - MIGRAINE [None]
  - FATIGUE [None]
  - MOOD ALTERED [None]
  - DYSPNOEA [None]
  - VOMITING [None]
  - SKIN STRIAE [None]
  - ABDOMINAL PAIN [None]
  - BACK PAIN [None]
  - ACTIVITIES OF DAILY LIVING IMPAIRED [None]
  - DIARRHOEA [None]
  - BONE PAIN [None]
  - HEART RATE INCREASED [None]
  - BLOOD PRESSURE INCREASED [None]
  - DEHYDRATION [None]
  - RASH [None]
  - NAUSEA [None]
  - HYPERHIDROSIS [None]
  - BREAST TENDERNESS [None]
  - LIBIDO DECREASED [None]
  - DIZZINESS [None]
  - ABDOMINAL PAIN UPPER [None]
  - ACNE [None]
  - ANXIETY [None]
